FAERS Safety Report 6503045-0 (Version None)
Quarter: 2009Q4

REPORT INFORMATION
  Report Type: 
  Country: None (occurrence: None)
  Receive Date: 20091217
  Receipt Date: 20091210
  Transmission Date: 20100525
  Serious: Yes (Hospitalization)
  Sender: FDA-Public Use
  Company Number: JP-ROCHE-671392

PATIENT
  Sex: Female
  Weight: 57 kg

DRUGS (8)
  1. ROCEPHIN [Suspect]
     Route: 041
     Dates: start: 20090918, end: 20091113
  2. ALDACTONE [Concomitant]
     Route: 048
  3. LASIX [Concomitant]
     Route: 048
  4. MEXITIL [Concomitant]
     Route: 048
  5. AMLODIN [Concomitant]
     Route: 048
     Dates: end: 20091011
  6. AMLODIN [Concomitant]
     Dosage: NOTE: NON-DIALYSIS DAY
     Route: 048
     Dates: start: 20091012
  7. CALTAN [Concomitant]
     Route: 048
     Dates: start: 20080222
  8. ALFAROL [Concomitant]
     Dosage: DRUG :ALFAROL CAPSULES.
     Route: 048
     Dates: start: 20080721

REACTIONS (1)
  - BONE MARROW FAILURE [None]
